FAERS Safety Report 8973501 (Version 1)
Quarter: 2012Q4

REPORT INFORMATION
  Report Type: 
  Country: US (occurrence: US)
  Receive Date: 20121218
  Receipt Date: 20121218
  Transmission Date: 20130627
  Serious: No
  Sender: FDA-Public Use
  Company Number: US-BRISTOL-MYERS SQUIBB COMPANY-16829228

PATIENT
  Age: 59 Year
  Sex: Male
  Weight: 90.7 kg

DRUGS (3)
  1. ABILIFY [Suspect]
     Indication: MANIA
     Route: 048
     Dates: start: 20120718
  2. FLUOXETINE [Suspect]
     Route: 048
     Dates: start: 20120718
  3. DEPAKOTE [Suspect]
     Dosage: Depakote 1000mg decreased to 500mg
     Route: 048
     Dates: start: 20120718

REACTIONS (4)
  - Restlessness [Unknown]
  - Insomnia [Unknown]
  - Weight increased [Unknown]
  - Feeling abnormal [Unknown]
